FAERS Safety Report 5694570-3 (Version None)
Quarter: 2008Q2

REPORT INFORMATION
  Report Type: 
  Country: None (occurrence: None)
  Receive Date: 20080404
  Receipt Date: 20080326
  Transmission Date: 20081010
  Serious: Yes (Hospitalization)
  Sender: FDA-Public Use
  Company Number: US-ROCHE-466340

PATIENT
  Sex: Female
  Weight: 64.9 kg

DRUGS (1)
  1. BONIVA [Suspect]
     Route: 065
     Dates: end: 20060101

REACTIONS (2)
  - LETHARGY [None]
  - RECTAL CANCER [None]
